FAERS Safety Report 6299057 (Version 3)
Quarter: 2012Q4

REPORT INFORMATION
  Report Type: 
  Country: US (occurrence: US)
  Receive Date: 20070428
  Receipt Date: 20120912
  Transmission Date: 20130627
  Serious: Yes (Other)
  Sender: FDA-Public Use
  Company Number: US-PFIZER INC-2007031138

PATIENT
  Age: 53 Year
  Sex: Female
  Weight: 43.08 kg

DRUGS (9)
  1. DILANTIN-125 [Suspect]
     Indication: CONVULSION
     Dosage: 300 mg, 3x/day
  2. DILANTIN-125 [Suspect]
     Dosage: 200 mg, 2x/day
  3. CHANTIX [Suspect]
     Indication: SMOKING CESSATION THERAPY
     Dosage: 0.5 mg, 1x/day
     Dates: start: 20070408, end: 200704
  4. CHANTIX [Suspect]
     Dosage: 0.5 mg, 2x/day
     Dates: end: 200704
  5. CHANTIX [Suspect]
     Dosage: 1 mg, 2x/day
     Dates: start: 200704
  6. TEGRETOL [Concomitant]
  7. LIPITOR [Concomitant]
     Indication: BLOOD CHOLESTEROL INCREASED
     Dosage: 20 mg, daily
  8. NEXIUM [Concomitant]
  9. ADVAIR [Concomitant]
     Indication: DYSPNOEA
     Dosage: one puff, 2x/day

REACTIONS (10)
  - Brain neoplasm [Unknown]
  - Abnormal dreams [Recovering/Resolving]
  - Somnolence [Recovering/Resolving]
  - Depression [Recovering/Resolving]
  - Dizziness [Recovering/Resolving]
  - Visual impairment [Recovering/Resolving]
  - Balance disorder [Recovering/Resolving]
  - Dizziness [Recovering/Resolving]
  - Asthenia [Recovering/Resolving]
  - Sluggishness [Recovering/Resolving]
